FAERS Safety Report 5764827-6 (Version None)
Quarter: 2008Q2

REPORT INFORMATION
  Report Type: 
  Country: None (occurrence: None)
  Receive Date: 20080602
  Receipt Date: 20070712
  Transmission Date: 20081010
  Serious: Yes (Hospitalization)
  Sender: FDA-Public Use
  Company Number: WAES 0707USA01928

PATIENT
  Sex: Female

DRUGS (2)
  1. EMEND [Suspect]
     Indication: BREAST CANCER
     Dosage: PO
     Route: 048
  2. THERAPY UNSPECIFIED [Concomitant]

REACTIONS (1)
  - DIARRHOEA [None]
